FAERS Safety Report 6185791-4 (Version None)
Quarter: 2009Q2

REPORT INFORMATION
  Report Type: 
  Country: None (occurrence: None)
  Receive Date: 20090511
  Receipt Date: 20090501
  Transmission Date: 20091009
  Serious: Yes (Death)
  Sender: FDA-Public Use
  Company Number: A0714124A

PATIENT
  Age: 65 Year
  Sex: Male
  Weight: 90.5 kg

DRUGS (2)
  1. AVANDIA [Suspect]
     Dosage: 8MG PER DAY
     Route: 048
     Dates: start: 20051206, end: 20060523
  2. ACTOS [Concomitant]
     Dates: start: 20051006

REACTIONS (3)
  - ARTERIOSCLEROSIS [None]
  - HYPERLIPIDAEMIA [None]
  - MYOCARDIAL INFARCTION [None]
